FAERS Safety Report 6277632-1 (Version None)
Quarter: 2009Q3

REPORT INFORMATION
  Report Type: 
  Country: None (occurrence: None)
  Receive Date: 20090717
  Receipt Date: 20090717
  Transmission Date: 20100115
  Serious: Yes (Life-Threatening, Hospitalization)
  Sender: FDA-Public Use
  Company Number: None

PATIENT
  Age: 63 Year
  Sex: Female
  Weight: 75.9775 kg

DRUGS (2)
  1. IXABEPILONE 15 MG BMS [Suspect]
     Indication: BREAST CANCER
     Dosage: 40 MG/M2 EVERY 21 DAYS IV
     Route: 042
     Dates: start: 20090603, end: 20090603
  2. DASATINIB 100 MG BMS [Suspect]
     Indication: BREAST CANCER
     Dosage: 100 MG EVERY DAY PO
     Route: 048
     Dates: start: 20090603, end: 20090607

REACTIONS (8)
  - CHEST PAIN [None]
  - DIARRHOEA [None]
  - FATIGUE [None]
  - INFECTION PARASITIC [None]
  - NAUSEA [None]
  - NEUTROPENIA [None]
  - URINARY TRACT INFECTION [None]
  - VOMITING [None]
